FAERS Safety Report 8362493-7 (Version None)
Quarter: 2012Q2

REPORT INFORMATION
  Report Type: 
  Country: None (occurrence: None)
  Receive Date: 20120514
  Receipt Date: 20120514
  Transmission Date: 20120825
  Serious: Yes (Hospitalization)
  Sender: FDA-Public Use
  Company Number: None

PATIENT
  Age: 56 Year
  Sex: Male
  Weight: 98.7934 kg

DRUGS (7)
  1. ARSENIC TRIOXIDE [Suspect]
     Indication: GLIOBLASTOMA MULTIFORME
     Dosage: 18.2347 MG BID WEEKLY X 7 WKS IV
     Route: 042
     Dates: start: 20120123, end: 20120308
  2. 1-LIDODERM PATCH [Concomitant]
  3. 4-LEXAPRO [Concomitant]
  4. 3-NORCO [Concomitant]
  5. KEPPRA [Suspect]
  6. 5-CELEXA [Concomitant]
  7. TEMOZOLOMIDE [Suspect]
     Indication: GLIOBLASTOMA MULTIFORME
     Dosage: 420 MG DAILY X5 Q 28DAYS PO
     Route: 048
     Dates: start: 20120123, end: 20120511

REACTIONS (9)
  - OXYGEN SATURATION DECREASED [None]
  - DEHYDRATION [None]
  - BRADYCARDIA [None]
  - SYNCOPE [None]
  - RENAL FAILURE [None]
  - COLD SWEAT [None]
  - HYPOTENSION [None]
  - AMNESIA [None]
  - HEADACHE [None]
